FAERS Safety Report 6152912-9 (Version None)
Quarter: 2009Q2

REPORT INFORMATION
  Report Type: 
  Country: None (occurrence: None)
  Receive Date: 20090413
  Receipt Date: 20090401
  Transmission Date: 20091009
  Serious: Yes (Other)
  Sender: FDA-Public Use
  Company Number: AT-ELI_LILLY_AND_COMPANY-AT200903004993

PATIENT
  Age: 9 Year
  Sex: Male
  Weight: 32 kg

DRUGS (2)
  1. STRATTERA [Suspect]
     Indication: ATTENTION DEFICIT/HYPERACTIVITY DISORDER
     Dosage: 25 MG, DAILY (1/D)
     Route: 065
     Dates: start: 20080901, end: 20081201
  2. STRATTERA [Suspect]
     Dosage: 25 MG, DAILY (1/D)
     Route: 065
     Dates: start: 20090101

REACTIONS (2)
  - BLOOD PRESSURE INCREASED [None]
  - EPISTAXIS [None]
